FAERS Safety Report 4421960-9 (Version None)
Quarter: 2004Q3

REPORT INFORMATION
  Report Type: 
  Country: None (occurrence: None)
  Receive Date: 20040805
  Receipt Date: 20040722
  Transmission Date: 20050211
  Serious: Yes (Death)
  Sender: FDA-Public Use
  Company Number: T01-USA-02056-01

PATIENT
  Sex: Male
  Weight: 1.733 kg

DRUGS (8)
  1. INFASURF PRESERVATIVE FREE [Suspect]
     Indication: NEONATAL RESPIRATORY DISTRESS SYNDROME
  2. SURVANTA [Suspect]
     Indication: NEONATAL RESPIRATORY DISTRESS SYNDROME
     Dates: start: 20011005, end: 20011013
  3. CEFOTAXIME SODIUM [Concomitant]
  4. FENTANYL [Concomitant]
  5. LORAZEPAM [Concomitant]
  6. DECADRON [Concomitant]
  7. REGULAR INSULIN [Concomitant]
  8. VECURONIUM BROMIDE [Concomitant]

REACTIONS (8)
  - ARRHYTHMIA [None]
  - CORYNEBACTERIUM INFECTION [None]
  - NEONATAL DISORDER [None]
  - PNEUMONIA [None]
  - PREMATURE BABY [None]
  - PULMONARY INTERSTITIAL EMPHYSEMA SYNDROME [None]
  - RENAL FAILURE [None]
  - SEPSIS [None]
